FAERS Safety Report 6692929-9 (Version None)
Quarter: 2010Q2

REPORT INFORMATION
  Report Type: 
  Country: None (occurrence: None)
  Receive Date: 20100422
  Receipt Date: 20100409
  Transmission Date: 20101027
  Serious: Yes (Other)
  Sender: FDA-Public Use
  Company Number: US-ELI_LILLY_AND_COMPANY-US201004002648

PATIENT
  Age: 38 Year
  Sex: Female

DRUGS (3)
  1. CYMBALTA [Suspect]
     Dosage: 1 D/F, UNK
  2. PROZAC [Suspect]
     Indication: GENERALISED ANXIETY DISORDER
     Dosage: 1 D/F, UNK
  3. GEODON [Concomitant]
     Indication: GENERALISED ANXIETY DISORDER
     Dosage: 20 MG, 2/D
     Dates: end: 20100101

REACTIONS (2)
  - DRUG EXPOSURE DURING PREGNANCY [None]
  - HEPATIC ENZYME INCREASED [None]
